FAERS Safety Report 6087057-X (Version None)
Quarter: 2009Q1

REPORT INFORMATION
  Report Type: 
  Country: None (occurrence: None)
  Receive Date: 20090223
  Receipt Date: 20090215
  Transmission Date: 20090719
  Serious: Yes (Other)
  Sender: FDA-Public Use
  Company Number: PHEH2009US00490

PATIENT
  Sex: Female
  Weight: 72.562 kg

DRUGS (14)
  1. FEMARA [Suspect]
     Indication: BREAST CANCER
     Dosage: 2.5 MG, QD
     Route: 048
     Dates: start: 20080616
  2. HERCEPTIN [Suspect]
     Indication: BREAST CANCER
     Dosage: 2 MG/KG IV WEEKLY
     Route: 042
     Dates: start: 20080331
  3. ACTONEL [Concomitant]
     Dosage: 35 MG, QW
     Route: 048
  4. CALCIUM [Concomitant]
     Dosage: 1200 MG, BID
     Route: 048
  5. CELEXA [Concomitant]
     Dosage: 20 MG, QD
     Route: 048
  6. DEXAMETHASONE [Concomitant]
     Dosage: 16 MG BID DAY BEFORE AND DAY AFTER CHEMO
     Route: 048
  7. DEXAMETHASONE [Concomitant]
     Dosage: 8 MG BID SECOND DAY AFTER CHEMO
     Route: 048
  8. FISH OIL [Concomitant]
     Dosage: 2.5 MG, QD
     Route: 048
  9. LORAZEPAM [Concomitant]
     Indication: NAUSEA
     Dosage: 1 MG PO Q4H  PRN
     Route: 048
  10. MULTI-VITAMINS [Concomitant]
  11. PERCOCET [Concomitant]
     Indication: PAIN
     Dosage: 1 PO Q4HR PRN
     Route: 048
  12. PROCHLORPERAZINE [Concomitant]
     Indication: NAUSEA
     Dosage: 10 MG PO Q6HRS PRN
     Route: 048
  13. RELAFEN [Concomitant]
     Dosage: 500 MG, BID
     Route: 048
  14. VICODIN [Concomitant]
     Indication: PAIN
     Dosage: 1 PO Q4HR PRN
     Route: 048

REACTIONS (10)
  - ALANINE AMINOTRANSFERASE INCREASED [None]
  - ALTERED STATE OF CONSCIOUSNESS [None]
  - ASPARTATE AMINOTRANSFERASE INCREASED [None]
  - BLOOD ALKALINE PHOSPHATASE [None]
  - COGNITIVE DISORDER [None]
  - CONVULSION [None]
  - HYPOTONIA [None]
  - LOSS OF CONSCIOUSNESS [None]
  - MUSCLE RIGIDITY [None]
  - TREMOR [None]
